FAERS Safety Report 22725641 (Version 2)
Quarter: 2023Q4

REPORT INFORMATION
  Report Type: Spontaneous
  Country: US (occurrence: US)
  Receive Date: 20230719
  Receipt Date: 20231121
  Transmission Date: 20240109
  Serious: Yes (Death)
  Sender: FDA-Public Use
  Company Number: US-PFIZER INC-PV202300094099

PATIENT
  Age: 84 Year
  Sex: Male
  Weight: 78.02 kg

DRUGS (3)
  1. VYNDAMAX [Suspect]
     Active Substance: TAFAMIDIS
     Indication: Cardiac amyloidosis
     Dosage: 61 MG, 1X/DAY (ONCE A DAY IN MORNING)
     Dates: start: 202201, end: 20230702
  2. BUMEX [Concomitant]
     Active Substance: BUMETANIDE
     Dosage: 4 MG, 2X/DAY (4MG TWICE A DAY)
  3. POTASSIUM [Concomitant]
     Active Substance: POTASSIUM
     Dosage: 40 MEQ, 2X/DAY (40MEQ TWICE A DAY)

REACTIONS (1)
  - Cardiac failure [Fatal]
